FAERS Safety Report 9792837 (Version 1)
Quarter: 2014Q1

REPORT INFORMATION
  Report Type: Spontaneous
  Country: US (occurrence: US)
  Receive Date: 20140102
  Receipt Date: 20140102
  Transmission Date: 20141002
  Serious: No
  Sender: FDA-Public Use
  Company Number: US-SA-2013SA115760

PATIENT
  Sex: Female

DRUGS (3)
  1. AUBAGIO [Suspect]
     Indication: MULTIPLE SCLEROSIS
     Route: 048
     Dates: start: 201305
  2. VICOPROFEN [Concomitant]
     Dosage: 7.5-200
  3. ZOLPIDEM TARTRATE [Concomitant]

REACTIONS (1)
  - Nausea [Unknown]
